FAERS Safety Report 8979896 (Version 2)
Quarter: 2013Q2

REPORT INFORMATION
  Report Type: Spontaneous
  Country: US (occurrence: US)
  Receive Date: 20121221
  Receipt Date: 20130517
  Transmission Date: 20140414
  Serious: No
  Sender: FDA-Public Use
  Company Number: US-PFIZER INC-2012324055

PATIENT
  Age: 35 Year
  Sex: Female
  Weight: 72.56 kg

DRUGS (4)
  1. LYRICA [Suspect]
     Indication: FIBROMYALGIA
     Dosage: 50 MG, 1X/DAY
     Route: 048
  2. LYRICA [Suspect]
     Dosage: 225 MG, 2X/DAY
     Route: 048
     Dates: end: 201212
  3. PLAQUENIL [Concomitant]
     Dosage: UNK
  4. LAMICTAL [Concomitant]
     Indication: CONVULSION
     Dosage: UNK

REACTIONS (9)
  - Migraine [Unknown]
  - Tremor [Unknown]
  - Diarrhoea [Unknown]
  - Malaise [Unknown]
  - Dysarthria [Unknown]
  - Speech disorder [Unknown]
  - Pain of skin [Unknown]
  - Memory impairment [Unknown]
  - Drug withdrawal syndrome [Unknown]
